FAERS Safety Report 5933493-9 (Version None)
Quarter: 2008Q4

REPORT INFORMATION
  Report Type: 
  Country: None (occurrence: None)
  Receive Date: 20081024
  Receipt Date: 20081014
  Transmission Date: 20090506
  Serious: Yes (Other)
  Sender: FDA-Public Use
  Company Number: SPV1-2008-02214

PATIENT
  Sex: Female

DRUGS (1)
  1. LIALDA [Suspect]

REACTIONS (3)
  - DIARRHOEA HAEMORRHAGIC [None]
  - DYSPLASIA [None]
  - POLYP [None]
